FAERS Safety Report 5734843-9 (Version None)
Quarter: 2008Q2

REPORT INFORMATION
  Report Type: 
  Country: None (occurrence: None)
  Receive Date: 20080512
  Receipt Date: 20080502
  Transmission Date: 20081010
  Serious: Yes (Hospitalization)
  Sender: FDA-Public Use
  Company Number: A0696773A

PATIENT
  Age: 28 Year
  Sex: Female

DRUGS (2)
  1. WELLBUTRIN [Suspect]
     Indication: DEPRESSION
     Route: 048
     Dates: start: 20000101, end: 20011101
  2. ZYRTEC [Concomitant]

REACTIONS (4)
  - COMPLICATION OF DELIVERY [None]
  - DELIVERY [None]
  - INDUCED LABOUR [None]
  - PRE-ECLAMPSIA [None]
